FAERS Safety Report 18244464 (Version 5)
Quarter: 2022Q4

REPORT INFORMATION
  Report Type: Spontaneous
  Country: GB (occurrence: GB)
  Receive Date: 20200909
  Receipt Date: 20221202
  Transmission Date: 20230113
  Serious: Yes (Other)
  Sender: FDA-Public Use
  Company Number: GB-BAXTER-2020BAX017656

PATIENT
  Age: 36 Year
  Sex: Female
  Weight: 89 kg

DRUGS (20)
  1. DOMPERIDONE [Suspect]
     Active Substance: DOMPERIDONE
     Indication: Supportive care
     Dosage: 30 MILLIGRAM, ONCE A DAY
     Route: 065
     Dates: start: 20200824
  2. DOMPERIDONE [Suspect]
     Active Substance: DOMPERIDONE
     Dosage: 8 MILLIGRAM, ONCE A DAY
     Route: 048
     Dates: start: 20200825
  3. METFORMIN [Suspect]
     Active Substance: METFORMIN HYDROCHLORIDE
     Indication: Diabetes mellitus
     Dosage: 500 MILLIGRAM, ONCE A DAY
     Route: 065
     Dates: start: 20200824
  4. ONDANSETRON [Suspect]
     Active Substance: ONDANSETRON
     Indication: Supportive care
     Dosage: 16 MILLIGRAM, ONCE A DAY
     Route: 065
     Dates: start: 20200824, end: 20200826
  5. APREPITANT [Suspect]
     Active Substance: APREPITANT
     Indication: Supportive care
     Dosage: 125 MG (D1)
     Route: 065
     Dates: start: 20200824, end: 20200826
  6. APREPITANT [Suspect]
     Active Substance: APREPITANT
     Dosage: 80 MG (D2)
     Route: 065
     Dates: start: 20200825
  7. APREPITANT [Suspect]
     Active Substance: APREPITANT
     Dosage: 80 MG (D3)
     Route: 065
     Dates: start: 20200826, end: 20200826
  8. CISPLATIN [Suspect]
     Active Substance: CISPLATIN
     Indication: Neoplasm recurrence
     Dosage: UNK
     Route: 065
  9. CISPLATIN [Suspect]
     Active Substance: CISPLATIN
     Indication: Germ cell neoplasm
     Dosage: UNK
     Route: 065
     Dates: start: 20200824, end: 20200824
  10. CISPLATIN [Suspect]
     Active Substance: CISPLATIN
     Dosage: 79 MILLIGRAM
     Route: 065
     Dates: start: 20200825
  11. DALTEPARIN [Suspect]
     Active Substance: DALTEPARIN
     Indication: Product used for unknown indication
     Dosage: 18000 INTERNATIONAL UNIT, ONCE A DAY
     Route: 065
     Dates: start: 20200824
  12. DEXAMETHASONE [Suspect]
     Active Substance: DEXAMETHASONE
     Indication: Supportive care
     Dosage: 8 MG, QD
     Route: 065
     Dates: start: 20200824, end: 20200826
  13. DEXAMETHASONE [Suspect]
     Active Substance: DEXAMETHASONE
     Dosage: 8 MILLIGRAM, ONCE A DAY
     Route: 065
     Dates: start: 20200825
  14. ETOPOSIDE [Suspect]
     Active Substance: ETOPOSIDE
     Indication: Neoplasm recurrence
     Dosage: UNK
     Route: 065
  15. ETOPOSIDE [Suspect]
     Active Substance: ETOPOSIDE
     Indication: Germ cell neoplasm
     Dosage: UNK
     Route: 065
     Dates: start: 202007
  16. ETOPOSIDE [Suspect]
     Active Substance: ETOPOSIDE
     Dosage: 720 MILLIGRAM, ONCE A DAY
     Route: 042
     Dates: start: 20200824, end: 20200824
  17. ETOPOSIDE [Suspect]
     Active Substance: ETOPOSIDE
     Dosage: 360 MILLIGRAM, ONCE A DAY
     Route: 065
     Dates: start: 20200824, end: 20200824
  18. SODIUM CHLORIDE [Suspect]
     Active Substance: SODIUM CHLORIDE
     Indication: Medication dilution
     Dosage: 2 DOSAGE FORM, ONCE A DAY
     Route: 042
     Dates: start: 20200824, end: 20200824
  19. SODIUM CHLORIDE [Suspect]
     Active Substance: SODIUM CHLORIDE
     Dosage: UNK (IN CISPLATIN)
     Route: 065
     Dates: start: 20200824, end: 20200824
  20. DALTEPARIN SODIUM [Suspect]
     Active Substance: DALTEPARIN SODIUM
     Indication: Product used for unknown indication
     Dosage: 18000 IU, QD
     Route: 065
     Dates: start: 20200824

REACTIONS (1)
  - Anaphylactic reaction [Recovered/Resolved]

NARRATIVE: CASE EVENT DATE: 20200824
